FAERS Safety Report 8208129-7 (Version None)
Quarter: 2012Q1

REPORT INFORMATION
  Report Type: 
  Country: None (occurrence: None)
  Receive Date: 20120314
  Receipt Date: 20120307
  Transmission Date: 20120608
  Serious: Yes (Other)
  Sender: FDA-Public Use
  Company Number: PHHY2012AU015385

PATIENT
  Sex: Male
  Weight: 120 kg

DRUGS (6)
  1. LORAZEPAM [Concomitant]
  2. OLANZAPINE [Concomitant]
     Indication: AGITATION
  3. PANTOPRAZOLE [Concomitant]
     Dosage: 40 MG, QD
  4. CLOZARIL [Suspect]
     Indication: SCHIZOPHRENIA
     Dosage: 600 MG, DAILY
     Route: 048
     Dates: start: 20040101, end: 20111101
  5. CITALOPRAM [Concomitant]
     Dosage: 20 MG, QD
  6. VALPROATE SODIUM [Concomitant]
     Dosage: 600 MG, UNK

REACTIONS (14)
  - BUNDLE BRANCH BLOCK LEFT [None]
  - MONOCYTE COUNT INCREASED [None]
  - CARDIAC DISORDER [None]
  - CARDIOMYOPATHY [None]
  - LEFT VENTRICULAR DYSFUNCTION [None]
  - THINKING ABNORMAL [None]
  - LYMPHOCYTE COUNT INCREASED [None]
  - GAMMA-GLUTAMYLTRANSFERASE INCREASED [None]
  - HALLUCINATION, AUDITORY [None]
  - DELUSIONAL DISORDER, UNSPECIFIED TYPE [None]
  - BLOOD CHLORIDE INCREASED [None]
  - HYPOTENSION [None]
  - ELECTROCARDIOGRAM QT PROLONGED [None]
  - BLOOD MAGNESIUM INCREASED [None]
